FAERS Safety Report 4704753-4 (Version None)
Quarter: 2005Q2

REPORT INFORMATION
  Report Type: 
  Country: None (occurrence: None)
  Receive Date: 20050630
  Receipt Date: 20050620
  Transmission Date: 20051028
  Serious: Yes (Hospitalization)
  Sender: FDA-Public Use
  Company Number: USA-2005-0020595

PATIENT
  Age: 85 Year
  Sex: Female

DRUGS (2)
  1. OXYCONTIN [Suspect]
     Indication: PAIN
     Dosage: 30 MG, Q12H, ORAL
     Route: 048
  2. HYDROCHLOROZIDE (HYDROCHLOROTHIAZIDE) [Suspect]

REACTIONS (3)
  - ABNORMAL BEHAVIOUR [None]
  - HALLUCINATION [None]
  - HYPONATRAEMIA [None]
